FAERS Safety Report 9422290 (Version 2)
Quarter: 2018Q3

REPORT INFORMATION
  Report Type: Spontaneous
  Country: US (occurrence: US)
  Receive Date: 20130726
  Receipt Date: 20180725
  Transmission Date: 20181010
  Serious: No
  Sender: FDA-Public Use
  Company Number: US-009507513-1307USA009933

PATIENT
  Age: 36 Year
  Sex: Female

DRUGS (4)
  1. ISENTRESS [Suspect]
     Active Substance: RALTEGRAVIR POTASSIUM
     Dosage: TOTAL DAILY DOSE: 800(UNKNOWN UNITS), COURSE# 1
     Route: 048
     Dates: start: 201209
  2. ZIDOVUDINE. [Suspect]
     Active Substance: ZIDOVUDINE
     Dosage: TOTAL DAILY DOSE: 180(UNKNOWN UNITS), COURSE# 1
     Route: 042
     Dates: start: 201211
  3. ZIDOVUDINE. [Suspect]
     Active Substance: ZIDOVUDINE
     Dosage: TOTAL DAILY DOSE: 90(UNKNOWN UNITS), COURSE# 2
     Route: 042
     Dates: start: 201211
  4. LAMIVUDINE AND ZIDOVUDINE [Suspect]
     Active Substance: LAMIVUDINE\ZIDOVUDINE
     Dosage: TOTAL DAILY DOSE: 2(UNKNOWN UNITS), COURSE# 1
     Route: 048
     Dates: start: 201209

REACTIONS (2)
  - No adverse event [Unknown]
  - Maternal exposure during pregnancy [Recovered/Resolved]
